FAERS Safety Report 7809507-8 (Version None)
Quarter: 2011Q4

REPORT INFORMATION
  Report Type: 
  Country: None (occurrence: None)
  Receive Date: 20111007
  Receipt Date: 20110929
  Transmission Date: 20120403
  Serious: Yes (Life-Threatening, Other)
  Sender: FDA-Public Use
  Company Number: 2011SP039602

PATIENT
  Age: 49 Year
  Sex: Female
  Weight: 72 kg

DRUGS (4)
  1. REBETOL [Suspect]
     Indication: HEPATITIS C
     Dosage: 1000 MG;QD;PO
     Route: 048
     Dates: start: 20100201, end: 20100701
  2. LEVOTHYROXINE SODIUM [Concomitant]
  3. VIRAFERONPEG [Suspect]
     Indication: HEPATITIS C
     Dosage: SC
     Route: 058
     Dates: start: 20100201, end: 20100701
  4. NEORECORMON [Concomitant]

REACTIONS (1)
  - BONE MARROW FAILURE [None]
